FAERS Safety Report 8091980-4 (Version None)
Quarter: 2012Q1

REPORT INFORMATION
  Report Type: 
  Country: None (occurrence: None)
  Receive Date: 20120129
  Receipt Date: 20111114
  Transmission Date: 20120608
  Serious: No
  Sender: FDA-Public Use
  Company Number: US-ABBOTT-11P-163-0869345-00

PATIENT
  Sex: Female
  Weight: 70.37 kg

DRUGS (11)
  1. PROVENTIL [Concomitant]
     Indication: ASTHMA
     Dosage: AS NEEDED SEASONALLY
     Route: 055
  2. IMITREX [Concomitant]
     Indication: MIGRAINE
  3. NEURONTIN [Concomitant]
     Indication: NEURALGIA
  4. NEURONTIN [Concomitant]
     Indication: FIBROMYALGIA
  5. AMBIEN [Concomitant]
     Indication: INSOMNIA
     Dosage: PRN
  6. METHOTREXATE [Concomitant]
     Indication: RHEUMATOID ARTHRITIS
  7. HUMIRA [Suspect]
     Indication: RHEUMATOID ARTHRITIS
     Dates: start: 20110701
  8. PREDNISONE TAB [Concomitant]
     Indication: RHEUMATOID ARTHRITIS
  9. PREDNISONE TAB [Concomitant]
  10. ESTROGENIC SUBSTANCE [Concomitant]
     Indication: HORMONE REPLACEMENT THERAPY
     Dosage: PATCH
  11. FIORICET [Concomitant]
     Indication: MIGRAINE

REACTIONS (3)
  - INJECTION SITE PAIN [None]
  - INCORRECT DOSE ADMINISTERED [None]
  - DEVICE MALFUNCTION [None]
